FAERS Safety Report 7208094-5 (Version None)
Quarter: 2011Q1

REPORT INFORMATION
  Report Type: 
  Country: None (occurrence: None)
  Receive Date: 20110104
  Receipt Date: 20101231
  Transmission Date: 20110831
  Serious: No
  Sender: FDA-Public Use
  Company Number: US-PFIZER INC-2011000024

PATIENT
  Sex: Female
  Weight: 63.492 kg

DRUGS (3)
  1. PRINZIDE [Concomitant]
     Indication: BLOOD PRESSURE
     Dosage: [LISINOPRIL 20MG]/[HYDROCHLOROTHIAZIDE 25MG], 1X/DAY
     Route: 048
     Dates: start: 19760101
  2. PRISTIQ [Suspect]
     Indication: DEPRESSION
     Dosage: 50 MG, 1X/DAY
     Route: 048
     Dates: start: 20101101
  3. XANAX [Concomitant]
     Indication: SLEEP DISORDER
     Dosage: 0.5 MG, 1X/DAY
     Route: 048

REACTIONS (1)
  - URINARY INCONTINENCE [None]
